FAERS Safety Report 19003865 (Version 3)
Quarter: 2021Q2

REPORT INFORMATION
  Report Type: Spontaneous
  Country: AR (occurrence: AR)
  Receive Date: 20210312
  Receipt Date: 20210625
  Transmission Date: 20210717
  Serious: No
  Sender: FDA-Public Use
  Company Number: AR-GLAXOSMITHKLINE-ARCH2021012356

PATIENT
  Sex: Female

DRUGS (2)
  1. NICOTINELL [Suspect]
     Active Substance: NICOTINE
     Indication: PRODUCT USED FOR UNKNOWN INDICATION
  2. NICOTINELL [Suspect]
     Active Substance: NICOTINE
     Indication: PRODUCT USED FOR UNKNOWN INDICATION

REACTIONS (4)
  - Medication error [Unknown]
  - Nicotine dependence [Unknown]
  - Wrong technique in product usage process [Unknown]
  - Product complaint [Unknown]
